FAERS Safety Report 5351900-X (Version None)
Quarter: 2007Q2

REPORT INFORMATION
  Report Type: 
  Country: None (occurrence: None)
  Receive Date: 20070609
  Receipt Date: 20070531
  Transmission Date: 20071010
  Serious: Yes (Other)
  Sender: FDA-Public Use
  Company Number: FR-ABBOTT-07P-056-0370134-00

PATIENT
  Sex: Male
  Weight: 26 kg

DRUGS (4)
  1. DEPAKENE [Suspect]
     Indication: POST PROCEDURAL HAEMATOMA
     Route: 048
     Dates: start: 20060901
  2. CARBAMAZEPINE [Concomitant]
     Indication: DRUG USE FOR UNKNOWN INDICATION
  3. CARBAMAZEPINE [Concomitant]
  4. CARBAMAZEPINE [Concomitant]

REACTIONS (19)
  - ALOPECIA [None]
  - BALANCE DISORDER [None]
  - BLOOD THYROID STIMULATING HORMONE DECREASED [None]
  - DEAFNESS [None]
  - DIARRHOEA [None]
  - ENURESIS [None]
  - FACIAL SPASM [None]
  - FATIGUE [None]
  - GAIT DISTURBANCE [None]
  - GAMMA-GLUTAMYLTRANSFERASE INCREASED [None]
  - MUSCLE CONTRACTIONS INVOLUNTARY [None]
  - MUSCLE SPASMS [None]
  - NYSTAGMUS [None]
  - PARALYSIS [None]
  - RASH [None]
  - SOMNOLENCE [None]
  - VERTIGO [None]
  - VISUAL ACUITY REDUCED [None]
  - WEIGHT DECREASED [None]
